FAERS Safety Report 17281079 (Version 1)
Quarter: 2020Q1

REPORT INFORMATION
  Report Type: Spontaneous
  Country: TR (occurrence: TR)
  Receive Date: 20200117
  Receipt Date: 20200117
  Transmission Date: 20200409
  Serious: Yes (Other)
  Sender: FDA-Public Use
  Company Number: TR-SUN PHARMACEUTICAL INDUSTRIES LTD-2020RR-233578

PATIENT
  Age: 27 Year
  Sex: Male

DRUGS (6)
  1. PREDNISOLONE. [Suspect]
     Active Substance: PREDNISOLONE
     Indication: SKIN GRAFT
     Dosage: 80 MILLIGRAM, DAILY
     Route: 048
  2. ACETAZOLAMIDE. [Suspect]
     Active Substance: ACETAZOLAMIDE
     Indication: INTRAOCULAR PRESSURE INCREASED
     Dosage: 250 MILLIGRAM, UNK
     Route: 048
  3. LATANOPROST. [Suspect]
     Active Substance: LATANOPROST
     Indication: INTRAOCULAR PRESSURE INCREASED
     Dosage: 1 X 1
     Route: 061
  4. FAMOTIDINE. [Suspect]
     Active Substance: FAMOTIDINE
     Indication: SKIN GRAFT
     Dosage: UNK
     Route: 065
  5. PREDNISOLONE ACETATE. [Suspect]
     Active Substance: PREDNISOLONE ACETATE
     Indication: SKIN GRAFT
     Dosage: UNK
     Route: 061
  6. CYCLOSPORINE A 2% [Suspect]
     Active Substance: CYCLOSPORINE
     Indication: SKIN GRAFT
     Dosage: UNK
     Route: 065

REACTIONS (3)
  - Therapeutic product effect incomplete [Unknown]
  - Transplant rejection [Unknown]
  - Herpes ophthalmic [Unknown]
